FAERS Safety Report 9028527 (Version 1)
Quarter: 2013Q1

REPORT INFORMATION
  Report Type: Spontaneous
  Country: GB (occurrence: GB)
  Receive Date: 20130124
  Receipt Date: 20130124
  Transmission Date: 20140127
  Serious: Yes (Death, Other)
  Sender: FDA-Public Use
  Company Number: GB-ROCHE-1182891

PATIENT
  Age: 23 Year
  Sex: Female
  Weight: 110 kg

DRUGS (15)
  1. VESANOID [Suspect]
     Indication: ACUTE PROMYELOCYTIC LEUKAEMIA
     Route: 048
     Dates: start: 20121110, end: 20121126
  2. ACICLOVIR [Concomitant]
  3. BUSCOPAN [Concomitant]
  4. CODEINE [Concomitant]
  5. FLUCONAZOLE [Concomitant]
  6. HYDROCORTISONE [Concomitant]
  7. IDARUBICIN [Concomitant]
  8. ITRACONAZOLE [Concomitant]
  9. MEROPENEM [Concomitant]
  10. METRONIDAZOLE [Concomitant]
  11. NYSTATIN [Concomitant]
  12. OMEPRAZOLE [Concomitant]
  13. PARACETAMOL [Concomitant]
  14. TAZOCIN [Concomitant]
  15. VANCOMYCIN [Concomitant]

REACTIONS (4)
  - Necrotising colitis [Fatal]
  - Diarrhoea haemorrhagic [Not Recovered/Not Resolved]
  - Neutropenia [Not Recovered/Not Resolved]
  - Neutropenic sepsis [Not Recovered/Not Resolved]
